FAERS Safety Report 19870985 (Version 1)
Quarter: 2021Q3

REPORT INFORMATION
  Report Type: Spontaneous
  Country: US (occurrence: US)
  Receive Date: 20210922
  Receipt Date: 20210922
  Transmission Date: 20211014
  Serious: Yes (Other)
  Sender: FDA-Public Use
  Company Number: US-PERRIGO-21US027435

PATIENT
  Age: 27 Year
  Sex: Male

DRUGS (2)
  1. RANITIDINE HYDROCHLORIDE (852) [Suspect]
     Active Substance: RANITIDINE HYDROCHLORIDE
     Indication: ABDOMINAL DISCOMFORT
  2. RANITIDINE HYDROCHLORIDE (852) [Suspect]
     Active Substance: RANITIDINE HYDROCHLORIDE
     Indication: DYSPEPSIA
     Dosage: DOSE FREQUENCY: DAILY
     Route: 048
     Dates: start: 198401, end: 201910

REACTIONS (5)
  - Cyst [Unknown]
  - Colorectal cancer [Unknown]
  - Squamous cell carcinoma of skin [Unknown]
  - Skin cancer [Unknown]
  - Pancreatic cyst [Unknown]

NARRATIVE: CASE EVENT DATE: 19891001
